FAERS Safety Report 19892905 (Version 1)
Quarter: 2021Q3

REPORT INFORMATION
  Report Type: Report from Study
  Country: IT (occurrence: IT)
  Receive Date: 20210928
  Receipt Date: 20210928
  Transmission Date: 20211014
  Serious: Yes (Life-Threatening, Hospitalization)
  Sender: FDA-Public Use
  Company Number: IT-VER-202100013

PATIENT
  Age: 65 Year
  Sex: Male

DRUGS (5)
  1. TRIPTORELIN PAMOATE [Suspect]
     Active Substance: TRIPTORELIN PAMOATE
     Indication: SALIVARY GLAND CANCER
     Dosage: UNK (1 IN 28 D)
     Route: 030
     Dates: start: 20200818
  2. TAMULOSIN [Concomitant]
     Active Substance: TAMSULOSIN
     Indication: BENIGN PROSTATIC HYPERPLASIA
     Dosage: 0.4 MG, 1X/DAY
     Route: 048
  3. BICALUTAMIDE. [Suspect]
     Active Substance: BICALUTAMIDE
     Indication: SALIVARY GLAND CANCER
     Dosage: 1 IN 1 D
     Route: 048
     Dates: start: 20200812
  4. CEFIXIME. [Concomitant]
     Active Substance: CEFIXIME
     Indication: C-REACTIVE PROTEIN INCREASED
     Dosage: 400 MG, 1X/DAY
     Route: 048
     Dates: start: 20200924
  5. LEVOFLOXACIN. [Concomitant]
     Active Substance: LEVOFLOXACIN
     Indication: C-REACTIVE PROTEIN INCREASED
     Dosage: 750 MG, 1X/DAY
     Route: 048
     Dates: start: 20200924

REACTIONS (1)
  - Pleural infection [Recovered/Resolved]

NARRATIVE: CASE EVENT DATE: 20200925
